FAERS Safety Report 7076629-1 (Version None)
Quarter: 2010Q4

REPORT INFORMATION
  Report Type: 
  Country: None (occurrence: None)
  Receive Date: 20101101
  Receipt Date: 20101021
  Transmission Date: 20110411
  Serious: Yes (Hospitalization)
  Sender: FDA-Public Use
  Company Number: IT-BAYER-201041236GPV

PATIENT
  Age: 77 Year
  Sex: Female
  Weight: 68 kg

DRUGS (14)
  1. SORAFENIB [Suspect]
     Indication: ADENOCARCINOMA PANCREAS
     Dosage: TOTAL DAILY DOSE: 800 MG
     Route: 048
     Dates: start: 20100916, end: 20100920
  2. LAPATINIB [Suspect]
     Indication: ADENOCARCINOMA PANCREAS
     Route: 048
     Dates: start: 20100901, end: 20100920
  3. ACETYLSALICYLIC ACID [Concomitant]
     Indication: HYPERTENSION
     Route: 048
     Dates: start: 20060101
  4. RANITIDINE [Concomitant]
     Indication: PROPHYLAXIS
     Route: 048
     Dates: start: 20100916
  5. PARACODINE [Concomitant]
     Indication: COUGH
     Route: 048
     Dates: start: 20100916
  6. MUCOSYTE FLUID [Concomitant]
     Indication: PAIN
     Route: 048
     Dates: start: 20100916
  7. CIPROFLOXACIN [Concomitant]
     Indication: PYREXIA
     Route: 048
     Dates: start: 20100916, end: 20100924
  8. CO-EFFERALGAN [Concomitant]
     Indication: PAIN
     Dosage: 50 - 500 MG
     Route: 048
     Dates: start: 20100916
  9. VALACICLOVIR [Concomitant]
     Indication: HERPES ZOSTER
     Route: 048
     Dates: start: 20100916
  10. METOPROLOL [Concomitant]
     Indication: ARRHYTHMIA PROPHYLAXIS
     Route: 048
     Dates: start: 20040101
  11. PLACIMNIDE NOS [Concomitant]
     Indication: ARRHYTHMIA PROPHYLAXIS
     Route: 048
     Dates: start: 20050101
  12. BIPRIZIOC NOS [Concomitant]
     Indication: HYPERTENSION
     Dosage: 70 + 12.5 MG
     Route: 048
     Dates: start: 20050101
  13. IRBESARTAN [Concomitant]
     Indication: HYPERTENSION
     Route: 048
     Dates: start: 20060101
  14. ZOVIRAX [Concomitant]
     Indication: HERPES ZOSTER

REACTIONS (1)
  - GENERAL PHYSICAL HEALTH DETERIORATION [None]
